FAERS Safety Report 13256164 (Version 3)
Quarter: 2017Q2

REPORT INFORMATION
  Report Type: Spontaneous
  Country: GB (occurrence: GB)
  Receive Date: 20170221
  Receipt Date: 20170515
  Transmission Date: 20170830
  Serious: Yes (Other)
  Sender: FDA-Public Use
  Company Number: GB-REGENERON PHARMACEUTICALS, INC.-2017-12037

PATIENT

DRUGS (4)
  1. EYLEA [Suspect]
     Active Substance: AFLIBERCEPT
     Dosage: UNK UNK, ONCE
     Route: 031
     Dates: start: 20161216, end: 20161216
  2. EYLEA [Suspect]
     Active Substance: AFLIBERCEPT
     Indication: MACULAR OEDEMA
     Dosage: UNK UNK, ONCE
     Route: 031
     Dates: start: 20161104, end: 20161104
  3. EYLEA [Suspect]
     Active Substance: AFLIBERCEPT
     Dosage: UNK UNK, ONCE
     Route: 031
     Dates: start: 20170213, end: 20170213
  4. EYLEA [Suspect]
     Active Substance: AFLIBERCEPT
     Indication: RETINAL VEIN OCCLUSION
     Dosage: UNK UNK, ONCE
     Route: 031
     Dates: start: 20160929, end: 20160929

REACTIONS (2)
  - Vitreous floaters [Unknown]
  - Retinal deposits [Not Recovered/Not Resolved]
